FAERS Safety Report 9349520 (Version 1)
Quarter: 2013Q2

REPORT INFORMATION
  Report Type: Spontaneous
  Country: CA (occurrence: CA)
  Receive Date: 20130614
  Receipt Date: 20130614
  Transmission Date: 20140414
  Serious: Yes (Death)
  Sender: FDA-Public Use
  Company Number: CA-GLAXOSMITHKLINE-A1026459A

PATIENT
  Age: 51 Year
  Sex: Female
  Weight: 36.8 kg

DRUGS (1)
  1. ARIXTRA [Suspect]
     Indication: PRODUCT USED FOR UNKNOWN INDICATION
     Dosage: 7.5MG PER DAY
     Route: 058

REACTIONS (7)
  - Death [Fatal]
  - Convulsion [Unknown]
  - Haemorrhage [Unknown]
  - Haemorrhage intracranial [Unknown]
  - Intracranial venous sinus thrombosis [Unknown]
  - Contusion [Unknown]
  - Fall [Unknown]
